FAERS Safety Report 5807244-2 (Version None)
Quarter: 2008Q3

REPORT INFORMATION
  Report Type: 
  Country: None (occurrence: None)
  Receive Date: 20080711
  Receipt Date: 20080701
  Transmission Date: 20090109
  Serious: Yes (Hospitalization, Disabling)
  Sender: FDA-Public Use
  Company Number: JP-ASTRAZENECA-2008AP04531

PATIENT
  Age: 21849 Day
  Sex: Female

DRUGS (12)
  1. SEROQUEL [Suspect]
     Indication: SCHIZOPHRENIA
     Route: 048
     Dates: end: 20080526
  2. SEROQUEL [Suspect]
     Indication: DEPRESSION
     Route: 048
     Dates: end: 20080526
  3. SEROQUEL [Suspect]
     Dosage: 50 MG EVENING, 600 MG BEDTIME
     Route: 048
     Dates: start: 20080527, end: 20080528
  4. SEROQUEL [Suspect]
     Dosage: 50 MG EVENING, 600 MG BEDTIME
     Route: 048
     Dates: start: 20080527, end: 20080528
  5. WYPAX [Concomitant]
     Route: 048
     Dates: end: 20080528
  6. BIPERIDEN HYDROCHLORIDE TAB [Concomitant]
     Route: 048
     Dates: end: 20080526
  7. RHYTHMY [Concomitant]
     Route: 048
     Dates: end: 20080526
  8. NITRAZEPAM [Concomitant]
     Route: 048
     Dates: end: 20080526
  9. HIRNAMIN [Concomitant]
     Route: 048
     Dates: end: 20080526
  10. LULLAN [Concomitant]
     Route: 048
     Dates: end: 20080526
  11. DEPAS [Concomitant]
     Route: 048
     Dates: end: 20080528
  12. RIVOTRIL [Concomitant]
     Route: 048
     Dates: end: 20080528

REACTIONS (1)
  - RHABDOMYOLYSIS [None]
